FAERS Safety Report 4845512-1 (Version None)
Quarter: 2005Q4

REPORT INFORMATION
  Report Type: 
  Country: None (occurrence: None)
  Receive Date: 20051201
  Receipt Date: 20051117
  Transmission Date: 20060501
  Serious: Yes (Death)
  Sender: FDA-Public Use
  Company Number: 2005S1010112

PATIENT
  Age: 70 Year
  Sex: Female

DRUGS (10)
  1. CLOZAPINE [Suspect]
     Dosage: 50 MG;BID;ORAL
     Route: 048
     Dates: end: 20051009
  2. LITHIUM [Concomitant]
  3. MORPHINE [Concomitant]
  4. GALANTAMINE HYDROBROMIDE [Concomitant]
  5. MIRTAZAPINE [Concomitant]
  6. IBUPROFEN [Concomitant]
  7. VENLAFAXINE HYDROCHLORIDE [Concomitant]
  8. SULFADIAZINE [Concomitant]
  9. PARACETAMOL/HYDROCODONE BITARTRATE [Concomitant]
  10. MELATONIN [Concomitant]

REACTIONS (1)
  - DEMENTIA ALZHEIMER'S TYPE [None]
